FAERS Safety Report 6977923-2 (Version None)
Quarter: 2010Q3

REPORT INFORMATION
  Report Type: 
  Country: None (occurrence: None)
  Receive Date: 20100913
  Receipt Date: 20100901
  Transmission Date: 20110219
  Serious: Yes (Hospitalization)
  Sender: FDA-Public Use
  Company Number: US-US-EMD SERONO, INC.-7016540

PATIENT
  Sex: Female

DRUGS (1)
  1. REBIF [Suspect]
     Indication: MULTIPLE SCLEROSIS
     Dates: start: 20080101, end: 20100101

REACTIONS (5)
  - CONFUSIONAL STATE [None]
  - DIZZINESS [None]
  - ENCEPHALITIS HERPES [None]
  - MEMORY IMPAIRMENT [None]
  - STATUS EPILEPTICUS [None]
